FAERS Safety Report 6940352-1 (Version None)
Quarter: 2010Q3

REPORT INFORMATION
  Report Type: 
  Country: None (occurrence: None)
  Receive Date: 20100825
  Receipt Date: 20100811
  Transmission Date: 20110219
  Serious: No
  Sender: FDA-Public Use
  Company Number: US-PFIZER INC-2010102306

PATIENT
  Sex: Male
  Weight: 71 kg

DRUGS (3)
  1. NARDIL [Suspect]
     Indication: PANIC ATTACK
     Dosage: 22.5 MG, DAILY
     Route: 048
     Dates: start: 19980101
  2. XANAX [Concomitant]
     Dosage: UNK
  3. ACIPHEX [Concomitant]
     Dosage: UNK

REACTIONS (2)
  - MUSCLE SPASMS [None]
  - PAIN [None]
